FAERS Safety Report 18643918 (Version 1)
Quarter: 2020Q4

REPORT INFORMATION
  Report Type: Spontaneous
  Country: US (occurrence: US)
  Receive Date: 20201221
  Receipt Date: 20201221
  Transmission Date: 20210114
  Serious: No
  Sender: FDA-Public Use
  Company Number: US-BAYER-2020-279211

PATIENT
  Age: 62 Year
  Sex: Male

DRUGS (1)
  1. MIRALAX [Suspect]
     Active Substance: POLYETHYLENE GLYCOL 3350
     Indication: COLONOSCOPY
     Dosage: 17 G, BID
     Route: 048
     Dates: start: 20201128

REACTIONS (6)
  - Muscular weakness [Recovered/Resolved]
  - Product use in unapproved indication [Unknown]
  - Gait inability [Unknown]
  - Pain in extremity [Unknown]
  - Off label use [Unknown]
  - Groin pain [None]

NARRATIVE: CASE EVENT DATE: 20201128
